FAERS Safety Report 13008798 (Version 6)
Quarter: 2017Q1

REPORT INFORMATION
  Report Type: Report from Study
  Country: IL (occurrence: IL)
  Receive Date: 20161208
  Receipt Date: 20170125
  Transmission Date: 20170428
  Serious: Yes (Other)
  Sender: FDA-Public Use
  Company Number: PHHY2016IL166650

PATIENT
  Age: 61 Year
  Sex: Female

DRUGS (2)
  1. AFINITOR [Suspect]
     Active Substance: EVEROLIMUS
     Indication: BREAST CANCER
     Dosage: 5 MG, QD
     Route: 048
     Dates: start: 20161113, end: 20161202
  2. AFINITOR [Suspect]
     Active Substance: EVEROLIMUS
     Dosage: 5 MG, QD
     Route: 048
     Dates: start: 20161203

REACTIONS (11)
  - Peptic ulcer [Unknown]
  - Abdominal pain upper [Not Recovered/Not Resolved]
  - Cough [Recovering/Resolving]
  - Blood glucose increased [Not Recovered/Not Resolved]
  - Blood lactate dehydrogenase increased [Unknown]
  - Oropharyngeal pain [Not Recovered/Not Resolved]
  - Cough [Recovered/Resolved]
  - Oropharyngeal pain [Recovered/Resolved]
  - Musculoskeletal discomfort [Not Recovered/Not Resolved]
  - Pyrexia [Recovered/Resolved]
  - Back pain [Not Recovered/Not Resolved]

NARRATIVE: CASE EVENT DATE: 20161124
